FAERS Safety Report 9617779 (Version 2)
Quarter: 2013Q4

REPORT INFORMATION
  Report Type: Report from Study
  Country: PT (occurrence: PT)
  Receive Date: 20131011
  Receipt Date: 20131118
  Transmission Date: 20140711
  Serious: Yes (Other)
  Sender: FDA-Public Use
  Company Number: PT-ROCHE-1286418

PATIENT
  Sex: 0

DRUGS (2)
  1. PEG-INTERFERON ALFA 2A [Suspect]
     Indication: HEPATITIS C
     Route: 065
  2. RIBAVIRIN [Suspect]
     Indication: HEPATITIS C
     Route: 065

REACTIONS (28)
  - Suicidal ideation [Unknown]
  - Depression [Unknown]
  - Pyrexia [Unknown]
  - Chills [Unknown]
  - Asthenia [Unknown]
  - Fatigue [Unknown]
  - Anhedonia [Unknown]
  - Chest pain [Unknown]
  - Injection site reaction [Unknown]
  - Decreased appetite [Unknown]
  - Weight decreased [Unknown]
  - Hyperphagia [Unknown]
  - Anxiety [Unknown]
  - Insomnia [Unknown]
  - Irritability [Unknown]
  - Mood altered [Unknown]
  - Psychotic behaviour [Unknown]
  - Panic attack [Unknown]
  - Myalgia [Unknown]
  - Arthralgia [Unknown]
  - Alopecia [Unknown]
  - Dry skin [Unknown]
  - Hyperhidrosis [Unknown]
  - Headache [Unknown]
  - Nervous system disorder [Unknown]
  - Dizziness [Unknown]
  - Disturbance in attention [Unknown]
  - Infection [Unknown]
